FAERS Safety Report 15052115 (Version 2)
Quarter: 2018Q2

REPORT INFORMATION
  Report Type: Spontaneous
  Country: AU (occurrence: AU)
  Receive Date: 20180622
  Receipt Date: 20180628
  Transmission Date: 20180711
  Serious: Yes (Other)
  Sender: FDA-Public Use
  Company Number: AU-JNJFOC-20180624328

PATIENT
  Age: 73 Year
  Sex: Female

DRUGS (1)
  1. RIVAROXABAN [Suspect]
     Active Substance: RIVAROXABAN
     Indication: HIP ARTHROPLASTY
     Route: 048

REACTIONS (4)
  - Cholecystitis [Unknown]
  - Haemobilia [Unknown]
  - Vomiting [Unknown]
  - Melaena [Unknown]
